FAERS Safety Report 5154771-X (Version None)
Quarter: 2006Q4

REPORT INFORMATION
  Report Type: 
  Country: None (occurrence: None)
  Receive Date: 20061115
  Receipt Date: 20061115
  Transmission Date: 20070319
  Serious: Yes (Hospitalization)
  Sender: FDA-Public Use
  Company Number: None

PATIENT
  Sex: Male
  Weight: 116 kg

DRUGS (2)
  1. VANCOMYCIN [Suspect]
     Indication: ARTHRITIS BACTERIAL
     Dosage: 1 G,  1.25 G,   1.5 G   ONCE DAILY   IV
     Route: 042
     Dates: start: 20061031, end: 20061109
  2. VANCOMYCIN [Suspect]
     Indication: STAPHYLOCOCCAL INFECTION
     Dosage: 1 G,  1.25 G,   1.5 G   ONCE DAILY   IV
     Route: 042
     Dates: start: 20061031, end: 20061109

REACTIONS (1)
  - NEUTROPENIA [None]
